FAERS Safety Report 9381904 (Version 1)
Quarter: 2013Q3

REPORT INFORMATION
  Report Type: Spontaneous
  Country: CN (occurrence: CN)
  Receive Date: 20130703
  Receipt Date: 20130703
  Transmission Date: 20140515
  Serious: Yes (Other)
  Sender: FDA-Public Use
  Company Number: CN-PFIZER INC-2013196186

PATIENT
  Age: 82 Year
  Sex: Male

DRUGS (5)
  1. PIPERACILLIN/TAZOBACTAM [Suspect]
     Indication: LUNG INFECTION
     Dosage: 4.5 G, 3X/DAY
     Route: 041
     Dates: start: 2006
  2. CHYMOTRYPSIN [Concomitant]
     Indication: PRODUCTIVE COUGH
     Route: 055
  3. GENTAMICIN [Concomitant]
     Indication: PRODUCTIVE COUGH
     Route: 055
  4. AMBROXOL HYDROCHLORIDE [Concomitant]
     Indication: PRODUCTIVE COUGH
  5. OXYGEN [Concomitant]
     Indication: RESPIRATORY FAILURE
     Route: 055

REACTIONS (4)
  - Haematochezia [Recovered/Resolved]
  - Prothrombin time prolonged [None]
  - Haemorrhoidal haemorrhage [None]
  - Diarrhoea [None]
